FAERS Safety Report 11667018 (Version 1)
Quarter: 2015Q4

REPORT INFORMATION
  Report Type: Spontaneous
  Country: US (occurrence: US)
  Receive Date: 20151027
  Receipt Date: 20151027
  Transmission Date: 20160304
  Serious: No
  Sender: FDA-Public Use
  Company Number: US-ELI_LILLY_AND_COMPANY-US201002003798

PATIENT
  Age: 60 Year
  Sex: Female

DRUGS (1)
  1. FORTEO [Suspect]
     Active Substance: TERIPARATIDE
     Indication: OSTEOPOROSIS
     Dosage: 20 UG, DAILY (1/D)
     Dates: start: 201012

REACTIONS (16)
  - Arthralgia [Unknown]
  - Pain [Recovering/Resolving]
  - Weight loss poor [Unknown]
  - Abdominal distension [Unknown]
  - Oedema peripheral [Unknown]
  - Injection site pain [Recovering/Resolving]
  - Myalgia [Unknown]
  - Weight increased [Unknown]
  - Insomnia [Recovering/Resolving]
  - Disturbance in attention [Unknown]
  - Decreased activity [Unknown]
  - Dizziness [Recovering/Resolving]
  - Constipation [Recovering/Resolving]
  - Memory impairment [Recovering/Resolving]
  - Feeling abnormal [Unknown]
  - Moaning [Unknown]
